FAERS Safety Report 4373067-7 (Version None)
Quarter: 2004Q2

REPORT INFORMATION
  Report Type: 
  Country: None (occurrence: None)
  Receive Date: 20040603
  Receipt Date: 20040519
  Transmission Date: 20050107
  Serious: Yes (Other)
  Sender: FDA-Public Use
  Company Number: US_0404102270

PATIENT
  Age: 89 Year
  Sex: Female

DRUGS (2)
  1. EVISTA [Suspect]
     Dates: start: 20010101
  2. FORTEO [Suspect]
     Indication: OSTEOPOROSIS
     Dosage: 20 UG/1 DAY

REACTIONS (4)
  - BACK PAIN [None]
  - BONE PAIN [None]
  - MULTIPLE FRACTURES [None]
  - NECK PAIN [None]
